FAERS Safety Report 4337835-X (Version None)
Quarter: 2004Q1

REPORT INFORMATION
  Report Type: 
  Country: None (occurrence: None)
  Receive Date: 20040326
  Receipt Date: 20030516
  Transmission Date: 20041129
  Serious: No
  Sender: FDA-Public Use
  Company Number: 2003UW06392

PATIENT
  Age: 62 Year
  Sex: Female

DRUGS (4)
  1. ZESTRIL [Suspect]
     Dosage: 10 MG QD PO
     Route: 048
  2. ASPIRIN [Concomitant]
  3. VITAMIN E [Concomitant]
  4. VITAMIN C [Concomitant]

REACTIONS (1)
  - HEPATIC ENZYME INCREASED [None]
